FAERS Safety Report 5874747-4 (Version None)
Quarter: 2008Q3

REPORT INFORMATION
  Report Type: 
  Country: None (occurrence: None)
  Receive Date: 20080908
  Receipt Date: 20080908
  Transmission Date: 20090109
  Serious: Yes (Life-Threatening, Other)
  Sender: FDA-Public Use
  Company Number: None

PATIENT

DRUGS (1)
  1. ACETYLCYSTEINE [Suspect]

REACTIONS (4)
  - DYSPNOEA [None]
  - FLUSHING [None]
  - OVERDOSE [None]
  - RASH [None]
